FAERS Safety Report 8267956-0 (Version None)
Quarter: 2012Q2

REPORT INFORMATION
  Report Type: 
  Country: None (occurrence: None)
  Receive Date: 20120409
  Receipt Date: 20120403
  Transmission Date: 20120825
  Serious: Yes (Death, Hospitalization, Other)
  Sender: FDA-Public Use
  Company Number: PHEH2011US012898

PATIENT
  Sex: Female

DRUGS (17)
  1. CENTRUM [Concomitant]
     Dosage: 1 DF, DAILY
     Route: 048
  2. TASIGNA [Suspect]
     Indication: CHRONIC MYELOID LEUKAEMIA
     Dosage: 300 MG, BID
     Route: 048
     Dates: start: 20111221, end: 20120104
  3. FERROUS SULFATE TAB [Concomitant]
     Dosage: 325 MG, 3 TIMES DAILY
  4. TOPROL-XL [Concomitant]
     Dosage: 50 MG, DAILY
     Route: 048
  5. CALCIUM CARBONATE W/VITAMIN D NOS [Concomitant]
     Dosage: 1 DF, BID
     Route: 048
  6. POTASSIUM CHLORIDE [Concomitant]
     Dosage: 20 MEQ AS NEEDED
  7. MEXITIL [Concomitant]
     Dosage: 200 MG, 3 TIMES DAILY
     Route: 048
  8. NITROSTAT [Concomitant]
     Dosage: 0.4 MG, UNK
  9. PROAMATINE [Concomitant]
     Dosage: 2.5 MG, UNK
     Route: 048
  10. INFLUENZA VACCINE [Concomitant]
  11. COUMADIN [Concomitant]
     Dosage: 8 MG, DAILY
     Route: 048
  12. LASIX [Concomitant]
     Dosage: 20 MG, UNK
     Route: 048
  13. LIORESAL [Concomitant]
     Dosage: 20 MG, 3 TIMES DAILY
  14. SYNTHROID [Concomitant]
     Dosage: 100 UG, BEFORE BREAKFAST
  15. ZOFRAN [Concomitant]
     Dosage: 4 MG, 3 TIMES DAILY
     Route: 048
  16. PNEUMOCOCCAL CONJUGATE VACCINE [Concomitant]
     Dates: start: 20090929
  17. ZESTRIL [Concomitant]
     Dosage: 5 MG, BID
     Route: 048

REACTIONS (6)
  - CARDIAC FAILURE CONGESTIVE [None]
  - LIVER FUNCTION TEST ABNORMAL [None]
  - PULMONARY OEDEMA [None]
  - HEADACHE [None]
  - FLUID OVERLOAD [None]
  - NAUSEA [None]
